FAERS Safety Report 7515116-0 (Version None)
Quarter: 2011Q2

REPORT INFORMATION
  Report Type: 
  Country: None (occurrence: None)
  Receive Date: 20110601
  Receipt Date: 20110413
  Transmission Date: 20111010
  Serious: Yes (Life-Threatening, Hospitalization, Disabling, Other)
  Sender: FDA-Public Use
  Company Number: AU-ASTRAZENECA-2011SE21286

PATIENT
  Sex: Male
  Weight: 2.2 kg

DRUGS (2)
  1. SEROQUEL XR [Suspect]
     Indication: PSYCHOTIC DISORDER
     Route: 064
  2. ELEVIT [Concomitant]
     Indication: VITAMIN SUPPLEMENTATION
     Route: 064

REACTIONS (3)
  - VENTRICULAR SEPTAL DEFECT [None]
  - CONGENITAL PULMONARY VALVE ATRESIA [None]
  - PREMATURE BABY [None]
